FAERS Safety Report 8186961-6 (Version None)
Quarter: 2012Q1

REPORT INFORMATION
  Report Type: 
  Country: None (occurrence: None)
  Receive Date: 20120306
  Receipt Date: 20120302
  Transmission Date: 20120608
  Serious: Yes (Other)
  Sender: FDA-Public Use
  Company Number: US-PFIZER INC-2012056928

PATIENT
  Age: 85 Year
  Sex: Female
  Weight: 47.619 kg

DRUGS (2)
  1. GLUCOPHAGE [Concomitant]
     Indication: DIABETES MELLITUS
     Dosage: UNK
  2. IBUPROFEN (ADVIL) [Suspect]
     Indication: PAIN
     Dosage: UNK

REACTIONS (5)
  - DRUG DEPENDENCE [None]
  - ABNORMAL BEHAVIOUR [None]
  - OVERDOSE [None]
  - GENERAL PHYSICAL HEALTH DETERIORATION [None]
  - AGGRESSION [None]
